FAERS Safety Report 13113317 (Version 2)
Quarter: 2017Q1

REPORT INFORMATION
  Report Type: Spontaneous
  Country: FR (occurrence: FR)
  Receive Date: 20170113
  Receipt Date: 20170213
  Transmission Date: 20170428
  Serious: Yes (Death, Other)
  Sender: FDA-Public Use
  Company Number: FR-PFIZER INC-2017010655

PATIENT
  Age: 63 Year
  Sex: Male

DRUGS (14)
  1. NEURONTIN [Suspect]
     Active Substance: GABAPENTIN
     Indication: PAIN
     Dosage: 900 MG, 3X/DAY
     Route: 048
     Dates: start: 20161109, end: 20161228
  2. KETAMINE [Suspect]
     Active Substance: KETAMINE
     Indication: ANAESTHESIA
     Dosage: 30 MG, 2X/DAY (MORNING AND EVENING)
     Route: 048
     Dates: start: 20161222, end: 20161228
  3. FOLIC ACID. [Concomitant]
     Active Substance: FOLIC ACID
     Dosage: UNK
  4. SUFENTANIL [Suspect]
     Active Substance: SUFENTANIL
     Indication: ANALGESIC THERAPY
     Dosage: 50 UG, UNK
     Route: 042
     Dates: start: 20161110, end: 20170104
  5. NAROPEINE [Suspect]
     Active Substance: ROPIVACAINE HYDROCHLORIDE
     Indication: PAIN
     Dosage: 8.2 MG, 1X/DAY
     Route: 037
     Dates: start: 20161227
  6. LANSOPRAZOLE. [Concomitant]
     Active Substance: LANSOPRAZOLE
     Dosage: UNK
  7. XANAX [Suspect]
     Active Substance: ALPRAZOLAM
     Indication: ANXIETY
     Dosage: 0.25 MG, 3X/DAY
     Route: 048
     Dates: start: 20161223, end: 20161228
  8. PARACETAMOL [Concomitant]
     Active Substance: ACETAMINOPHEN
     Dosage: UNK
  9. PACLITAXEL. [Concomitant]
     Active Substance: PACLITAXEL
     Dosage: UNK
  10. LOVENOX [Suspect]
     Active Substance: ENOXAPARIN SODIUM
     Indication: DEEP VEIN THROMBOSIS
     Dosage: 0.6 ML, 2X/DAY
     Route: 058
     Dates: start: 20161127, end: 20161207
  11. SOLUPRED [Concomitant]
     Active Substance: PREDNISOLONE
     Dosage: UNK
  12. LOVENOX [Suspect]
     Active Substance: ENOXAPARIN SODIUM
     Dosage: 0.4 ML, DAILY
     Dates: start: 20161209
  13. HALDOL [Suspect]
     Active Substance: HALOPERIDOL
     Indication: PAIN
     Dosage: 3 GTT, 3X/DAY
     Route: 048
     Dates: start: 20161225, end: 20161226
  14. MORPHINE [Suspect]
     Active Substance: MORPHINE
     Indication: PAIN
     Dosage: 5.5 MG, 1X/DAY
     Route: 037
     Dates: start: 20161201, end: 20170104

REACTIONS (3)
  - Fall [Fatal]
  - Coma [Unknown]
  - Intracranial haematoma [Fatal]

NARRATIVE: CASE EVENT DATE: 20161229
